FAERS Safety Report 16589201 (Version 2)
Quarter: 2019Q3

REPORT INFORMATION
  Report Type: Spontaneous
  Country: DE (occurrence: DE)
  Receive Date: 20190718
  Receipt Date: 20190809
  Transmission Date: 20191004
  Serious: Yes (Hospitalization, Other)
  Sender: FDA-Public Use
  Company Number: DE-SA-2019SA191247

PATIENT
  Age: 26 Year
  Sex: Female
  Weight: 60 kg

DRUGS (7)
  1. LEMTRADA [Suspect]
     Active Substance: ALEMTUZUMAB
     Dosage: 12 MG, QD
     Route: 041
     Dates: start: 20190709, end: 20190710
  2. ACICLOVIR [Concomitant]
     Active Substance: ACYCLOVIR
     Indication: HERPES SIMPLEX
  3. TERBIGALEN [Concomitant]
     Indication: ONYCHOMYCOSIS
     Dosage: UNK UNK, QD
     Route: 065
  4. LEMTRADA [Suspect]
     Active Substance: ALEMTUZUMAB
     Indication: MULTIPLE SCLEROSIS
     Dosage: 12 MG
     Route: 041
     Dates: start: 20180601
  5. PANTOPRAZOLE [Concomitant]
     Active Substance: PANTOPRAZOLE
     Indication: PREMEDICATION
     Dosage: 20 MG, QD
     Route: 065
  6. ACICLOVIR [Concomitant]
     Active Substance: ACYCLOVIR
     Indication: PREMEDICATION
     Dosage: 200 MG, BID
     Route: 065
     Dates: start: 20190708
  7. TERBIGALEN [Concomitant]
     Indication: PREMEDICATION

REACTIONS (15)
  - Monocyte percentage decreased [Not Recovered/Not Resolved]
  - Eosinophil percentage decreased [Not Recovered/Not Resolved]
  - Lymphocyte count decreased [Not Recovered/Not Resolved]
  - Thrombocytopenia [Recovered/Resolved]
  - Leukopenia [Unknown]
  - White blood cell count decreased [Not Recovered/Not Resolved]
  - Immature granulocyte percentage increased [Not Recovered/Not Resolved]
  - Basophil percentage increased [Unknown]
  - Platelet count decreased [Not Recovered/Not Resolved]
  - Neutrophil count increased [Unknown]
  - Lymphocyte percentage decreased [Not Recovered/Not Resolved]
  - Red blood cell count decreased [Unknown]
  - Neutrophil percentage increased [Not Recovered/Not Resolved]
  - Body temperature increased [Unknown]
  - White blood cell count increased [Recovered/Resolved]

NARRATIVE: CASE EVENT DATE: 201907
